FAERS Safety Report 5094643-2 (Version None)
Quarter: 2006Q3

REPORT INFORMATION
  Report Type: 
  Country: None (occurrence: None)
  Receive Date: 20060831
  Receipt Date: 20060817
  Transmission Date: 20061208
  Serious: Yes (Hospitalization)
  Sender: FDA-Public Use
  Company Number: MY-MERCK-0608MYS00004

PATIENT
  Age: 64 Year
  Sex: Female

DRUGS (5)
  1. HYZAAR [Suspect]
     Indication: HYPERTENSION
     Route: 048
     Dates: start: 20041202, end: 20060803
  2. HYZAAR [Suspect]
     Route: 048
     Dates: start: 20060803
  3. HYZAAR [Suspect]
     Indication: MICROALBUMINURIA
     Route: 048
     Dates: start: 20041202, end: 20060803
  4. HYZAAR [Suspect]
     Route: 048
     Dates: start: 20060803
  5. SIMVASTATIN [Concomitant]
     Route: 065

REACTIONS (2)
  - HYPOKALAEMIA [None]
  - MEDICATION ERROR [None]
